FAERS Safety Report 10993395 (Version 1)
Quarter: 2015Q2

REPORT INFORMATION
  Report Type: Spontaneous
  Country: US (occurrence: None)
  Receive Date: 20150406
  Receipt Date: 20150406
  Transmission Date: 20150821
  Serious: Yes (Other)
  Sender: FDA-Public Use
  Company Number: None

PATIENT
  Age: 21 Year
  Sex: Female
  Weight: 68.04 kg

DRUGS (1)
  1. PRIMATENE MIST [Suspect]
     Active Substance: EPINEPHRINE
     Indication: ASTHMA
     Dosage: 2 PILLS
     Route: 048
     Dates: start: 20150325, end: 20150405

REACTIONS (2)
  - Dysstasia [None]
  - Abdominal pain upper [None]

NARRATIVE: CASE EVENT DATE: 20150325
